FAERS Safety Report 9403469 (Version 3)
Quarter: 2013Q3

REPORT INFORMATION
  Report Type: Report from Study
  Country: DE (occurrence: DE)
  Receive Date: 20130716
  Receipt Date: 20130827
  Transmission Date: 20140515
  Serious: Yes (Hospitalization)
  Sender: FDA-Public Use
  Company Number: DE-EXELIXIS-XL18413002951

PATIENT
  Age: 73 Year
  Sex: Male
  Weight: 63.3 kg

DRUGS (8)
  1. XL184 [Suspect]
     Indication: PROSTATE CANCER
     Dosage: 60 MG, QD
     Route: 048
     Dates: start: 20130610, end: 20130619
  2. XL184 [Suspect]
     Dosage: 40 MG, QD
     Route: 048
     Dates: start: 20130620, end: 20130701
  3. XL184 [Suspect]
     Dosage: 40 MG, QD
     Route: 048
     Dates: start: 20130716
  4. XL184 [Suspect]
     Indication: PROSTATE CANCER
     Dosage: 5 MG, BID
     Route: 048
     Dates: start: 20130610
  5. TORSEMIDE [Concomitant]
  6. METFORMIN [Concomitant]
  7. LANTUS [Concomitant]
  8. BISOPROLOL [Concomitant]

REACTIONS (1)
  - Prerenal failure [Recovered/Resolved]
